FAERS Safety Report 19357458 (Version 1)
Quarter: 2021Q2

REPORT INFORMATION
  Report Type: Report from Study
  Country: None (occurrence: US)
  Receive Date: 20210601
  Receipt Date: 20210601
  Transmission Date: 20210717
  Serious: Yes (Other)
  Sender: FDA-Public Use
  Company Number: US-BAUSCH-BL-2021-018900

PATIENT

DRUGS (2)
  1. VILAZODONE [Suspect]
     Active Substance: VILAZODONE
     Indication: PRODUCT USED FOR UNKNOWN INDICATION
     Route: 065
  2. BUPROPION HYDROCHLORIDE. [Suspect]
     Active Substance: BUPROPION HYDROCHLORIDE
     Indication: PRODUCT USED FOR UNKNOWN INDICATION
     Route: 065

REACTIONS (4)
  - Serotonin syndrome [Not Recovered/Not Resolved]
  - Brain injury [Not Recovered/Not Resolved]
  - Intentional overdose [Unknown]
  - Memory impairment [Not Recovered/Not Resolved]
